FAERS Safety Report 8100916-9 (Version None)
Quarter: 2012Q1

REPORT INFORMATION
  Report Type: 
  Country: None (occurrence: None)
  Receive Date: 20120129
  Receipt Date: 20110909
  Transmission Date: 20120608
  Serious: No
  Sender: FDA-Public Use
  Company Number: US-ABBOTT-11P-163-0853280-00

PATIENT
  Age: 57 Year
  Sex: Female

DRUGS (2)
  1. CLOBETASOL [Concomitant]
     Indication: PSORIASIS
     Dosage: DAILY
  2. HUMIRA [Suspect]
     Indication: PSORIASIS
     Dates: start: 20110401

REACTIONS (2)
  - RASH PAPULAR [None]
  - RASH PRURITIC [None]
